FAERS Safety Report 23932382 (Version 1)
Quarter: 2024Q2

REPORT INFORMATION
  Report Type: Spontaneous
  Country: CA (occurrence: CA)
  Receive Date: 20240603
  Receipt Date: 20240603
  Transmission Date: 20240716
  Serious: Yes (Other)
  Sender: FDA-Public Use
  Company Number: CA-PFIZER INC-202300304560

PATIENT
  Age: 72 Year
  Sex: Female
  Weight: 63 kg

DRUGS (9)
  1. RUXIENCE [Suspect]
     Active Substance: RITUXIMAB-PVVR
     Indication: Rheumatoid arthritis
     Dosage: 1000 MG, DAY 1 NAIVE (ON DAY 1 AND DAY 15)
     Route: 042
     Dates: start: 20230918
  2. RUXIENCE [Suspect]
     Active Substance: RITUXIMAB-PVVR
     Dosage: 1000 MG, DAY 1 NAIVE (ON DAY 1 AND DAY 15)
     Route: 042
     Dates: start: 20230918
  3. RUXIENCE [Suspect]
     Active Substance: RITUXIMAB-PVVR
     Dosage: 1000 MG ON DAY 1 AND DAY 15 (AFTER 8 WEEKS)
     Route: 042
     Dates: start: 20231002
  4. RUXIENCE [Suspect]
     Active Substance: RITUXIMAB-PVVR
     Dosage: 1000 MG, DAY 1 OF RETREATMENT
     Dates: start: 20240424
  5. RUXIENCE [Suspect]
     Active Substance: RITUXIMAB-PVVR
     Dosage: 1000 MG, ON DAY 1 AND DAY 15 (2 WEEKS)
     Route: 042
     Dates: start: 20240508
  6. OXYGEN [Concomitant]
     Active Substance: OXYGEN
     Dosage: UNK
  7. SOLU-CORTEF [Concomitant]
     Active Substance: HYDROCORTISONE SODIUM SUCCINATE
     Indication: Premedication
     Dosage: 100 MG (PIV)
     Route: 042
     Dates: start: 20240508, end: 20240508
  8. TYLENOL [Concomitant]
     Active Substance: ACETAMINOPHEN
     Indication: Premedication
     Dosage: 650 MG
     Route: 048
     Dates: start: 20240508, end: 20240508
  9. BENADRYL [Concomitant]
     Active Substance: DIPHENHYDRAMINE HYDROCHLORIDE
     Indication: Premedication
     Dosage: 50 MG
     Route: 048
     Dates: start: 20240508, end: 20240508

REACTIONS (4)
  - Interstitial lung disease [Unknown]
  - Pulmonary fibrosis [Unknown]
  - Fatigue [Not Recovered/Not Resolved]
  - Blood pressure fluctuation [Unknown]

NARRATIVE: CASE EVENT DATE: 20230918
